FAERS Safety Report 6979460-8 (Version None)
Quarter: 2010Q3

REPORT INFORMATION
  Report Type: 
  Country: None (occurrence: None)
  Receive Date: 20100910
  Receipt Date: 20100910
  Transmission Date: 20110219
  Serious: Yes (Hospitalization)
  Sender: FDA-Public Use
  Company Number: None

PATIENT
  Age: 61 Year
  Sex: Female

DRUGS (2)
  1. SAVELLA [Suspect]
     Dosage: 50MG BID
  2. WELLBUTRIN XL [Suspect]
     Indication: DEPRESSION
     Dosage: 300MG IN AM

REACTIONS (5)
  - BACK PAIN [None]
  - COMPLEX PARTIAL SEIZURES [None]
  - CONVULSION [None]
  - GRAND MAL CONVULSION [None]
  - WITHDRAWAL SYNDROME [None]
